FAERS Safety Report 6796291-2 (Version None)
Quarter: 2010Q2

REPORT INFORMATION
  Report Type: 
  Country: None (occurrence: None)
  Receive Date: 20100624
  Receipt Date: 20100624
  Transmission Date: 20101027
  Serious: Yes (Other)
  Sender: FDA-Public Use
  Company Number: None

PATIENT
  Age: 61 Year
  Sex: Male

DRUGS (1)
  1. CHOLESTYRAMINE [Suspect]
     Dosage: MIX AND DRINK 10 PACKETS DAILY
     Dates: start: 20100528

REACTIONS (2)
  - DRUG INEFFECTIVE [None]
  - PRODUCT ODOUR ABNORMAL [None]
